FAERS Safety Report 6332231-8 (Version None)
Quarter: 2009Q3

REPORT INFORMATION
  Report Type: 
  Country: None (occurrence: None)
  Receive Date: 20090828
  Receipt Date: 20090814
  Transmission Date: 20100115
  Serious: Yes (Death)
  Sender: FDA-Public Use
  Company Number: NL-BAYER-200920129GPV

PATIENT
  Age: 61 Year
  Sex: Male

DRUGS (2)
  1. CIPROFLOXACIN HCL [Suspect]
     Indication: INFECTION PROPHYLAXIS
     Dosage: TOTAL DAILY DOSE: 1000 MG  UNIT DOSE: 250 MG
     Route: 048
     Dates: start: 20090504, end: 20090505
  2. THEOLAIR [Suspect]
     Indication: DRUG USE FOR UNKNOWN INDICATION
     Dosage: UNIT DOSE: 250 MG
     Route: 048

REACTIONS (1)
  - AORTIC DISSECTION RUPTURE [None]
